FAERS Safety Report 20010771 (Version 2)
Quarter: 2021Q4

REPORT INFORMATION
  Report Type: Spontaneous
  Country: JP (occurrence: JP)
  Receive Date: 20211029
  Receipt Date: 20211228
  Transmission Date: 20220303
  Serious: Yes (Hospitalization, Other)
  Sender: FDA-Public Use
  Company Number: JP-GSKNCCC-CASE-01337887_AE-51000

PATIENT
  Age: 81 Year
  Sex: Female
  Weight: 39.8 kg

DRUGS (3)
  1. FLUTICASONE FUROATE\VILANTEROL TRIFENATATE [Suspect]
     Active Substance: FLUTICASONE FUROATE\VILANTEROL TRIFENATATE
     Indication: Chronic obstructive pulmonary disease
     Dosage: 100 ?G, QD, 1 INHALATION
     Route: 055
     Dates: start: 20100526
  2. AMBROXOL HYDROCHLORIDE TABLET [Concomitant]
     Indication: Chronic obstructive pulmonary disease
     Dosage: 15 MG, TID
     Route: 048
  3. CARBOCYSTEINE [Concomitant]
     Active Substance: CARBOCYSTEINE
     Indication: Chronic obstructive pulmonary disease
     Dosage: 250 MG, TID
     Route: 048

REACTIONS (3)
  - Pneumonia [Recovering/Resolving]
  - Respiratory muscle weakness [Unknown]
  - Therapeutic response decreased [Unknown]

NARRATIVE: CASE EVENT DATE: 20211015
